FAERS Safety Report 6639806-7 (Version None)
Quarter: 2010Q1

REPORT INFORMATION
  Report Type: 
  Country: None (occurrence: None)
  Receive Date: 20100318
  Receipt Date: 20100303
  Transmission Date: 20100710
  Serious: Yes (Hospitalization)
  Sender: FDA-Public Use
  Company Number: JP-SANOFI-AVENTIS-2010SA012168

PATIENT
  Age: 26 Year
  Sex: Male

DRUGS (2)
  1. KETEK [Suspect]
     Indication: PYREXIA
     Route: 048
     Dates: start: 20090401, end: 20090401
  2. ALL OTHER THERAPEUTIC PRODUCTS [Concomitant]

REACTIONS (2)
  - JAUNDICE [None]
  - LIVER DISORDER [None]
